FAERS Safety Report 5901972-6 (Version None)
Quarter: 2008Q3

REPORT INFORMATION
  Report Type: 
  Country: None (occurrence: None)
  Receive Date: 20080924
  Receipt Date: 20080903
  Transmission Date: 20090109
  Serious: Yes (Hospitalization, Other)
  Sender: FDA-Public Use
  Company Number: 2007BI023371

PATIENT
  Age: 6 Year
  Sex: Female

DRUGS (7)
  1. AVONEX [Suspect]
     Indication: MULTIPLE SCLEROSIS RELAPSE
     Dosage: 30 UG;QW;IM; 7.5 UG;QW;IM
     Route: 030
     Dates: start: 20071006, end: 20071026
  2. AVONEX [Suspect]
     Indication: RELAPSING-REMITTING MULTIPLE SCLEROSIS
     Dosage: 30 UG;QW;IM; 7.5 UG;QW;IM
     Route: 030
     Dates: start: 20071006, end: 20071026
  3. AVONEX [Suspect]
     Indication: MULTIPLE SCLEROSIS RELAPSE
     Dosage: 30 UG;QW;IM; 7.5 UG;QW;IM
     Route: 030
     Dates: start: 20080121, end: 20080128
  4. AVONEX [Suspect]
     Indication: RELAPSING-REMITTING MULTIPLE SCLEROSIS
     Dosage: 30 UG;QW;IM; 7.5 UG;QW;IM
     Route: 030
     Dates: start: 20080121, end: 20080128
  5. FOSAMAC (CON.) [Concomitant]
  6. GASTER (CON.) [Concomitant]
  7. NOVANTRON (CON.) [Concomitant]

REACTIONS (6)
  - CHILLS [None]
  - CONVULSION [None]
  - FEBRILE CONVULSION [None]
  - INFLUENZA LIKE ILLNESS [None]
  - MULTIPLE SCLEROSIS RELAPSE [None]
  - PYREXIA [None]
